FAERS Safety Report 7388318-4 (Version None)
Quarter: 2011Q2

REPORT INFORMATION
  Report Type: 
  Country: None (occurrence: None)
  Receive Date: 20110401
  Receipt Date: 20110325
  Transmission Date: 20111010
  Serious: Yes (Death)
  Sender: FDA-Public Use
  Company Number: GB-ALEXION PHARMACEUTICALS INC.-A201100328

PATIENT

DRUGS (1)
  1. SOLIRIS [Suspect]
     Indication: ANAEMIA HAEMOLYTIC AUTOIMMUNE
     Dosage: 900 MG, UNK
     Route: 042
     Dates: start: 20110224, end: 20110224

REACTIONS (1)
  - DEATH [None]
